FAERS Safety Report 23312745 (Version 1)
Quarter: 2023Q4

REPORT INFORMATION
  Report Type: Report from Study
  Country: IT (occurrence: IT)
  Receive Date: 20231219
  Receipt Date: 20231219
  Transmission Date: 20240109
  Serious: Yes (Other)
  Sender: FDA-Public Use
  Company Number: None

PATIENT
  Age: 41 Year

DRUGS (3)
  1. DOCETAXEL [Suspect]
     Active Substance: DOCETAXEL\DOCETAXEL ANHYDROUS
     Indication: Adenocarcinoma gastric
     Dosage: TIME INTERVAL: 0.33333333 WEEKS: 80 MG EVERY 3 WEEKS
     Route: 042
     Dates: start: 20231024, end: 20231024
  2. OXALIPLATIN [Suspect]
     Active Substance: OXALIPLATIN
     Indication: Adenocarcinoma gastric
     Dosage: TIME INTERVAL: 0.33333333 WEEKS: 150 MG EVERY 3 WEEKS
     Route: 042
     Dates: start: 20231024, end: 20231024
  3. FLUOROURACIL [Suspect]
     Active Substance: FLUOROURACIL
     Indication: Adenocarcinoma gastric
     Dosage: TIME INTERVAL: 0.33333333 WEEKS: 4000 MG EVERY 3 WEEKS
     Route: 042
     Dates: start: 20231024, end: 20231024

REACTIONS (2)
  - Neutropenia [Not Recovered/Not Resolved]
  - Off label use [Not Recovered/Not Resolved]

NARRATIVE: CASE EVENT DATE: 20231024
